FAERS Safety Report 8942137 (Version 1)
Quarter: 2012Q4

REPORT INFORMATION
  Report Type: 
  Country: SE (occurrence: SE)
  Receive Date: 20121130
  Receipt Date: 20121130
  Transmission Date: 20130627
  Serious: Yes (Other)
  Sender: FDA-Public Use
  Company Number: SE-GLAXOSMITHKLINE-B0848719A

PATIENT
  Age: 48 Year
  Sex: Female

DRUGS (3)
  1. TROBALT [Suspect]
     Indication: EPILEPSY
     Route: 065
     Dates: start: 201201
  2. TROBALT [Suspect]
     Indication: EPILEPSY
     Dosage: 300MG Three times per day
     Route: 065
     Dates: start: 201205
  3. LEVETIRACETAM [Concomitant]
     Indication: PRODUCT USED FOR UNKNOWN INDICATION
     Route: 065

REACTIONS (6)
  - Convulsion [Not Recovered/Not Resolved]
  - Dizziness [Unknown]
  - Nausea [Unknown]
  - Weight decreased [Unknown]
  - Micturition disorder [Unknown]
  - Chromaturia [Unknown]
